FAERS Safety Report 8314427-9 (Version None)
Quarter: 2012Q2

REPORT INFORMATION
  Report Type: 
  Country: None (occurrence: None)
  Receive Date: 20120426
  Receipt Date: 20120419
  Transmission Date: 20120825
  Serious: Yes (Hospitalization)
  Sender: FDA-Public Use
  Company Number: US-ASTRAZENECA-2012SE22633

PATIENT
  Age: 58 Year
  Sex: Female

DRUGS (9)
  1. SEROQUEL [Suspect]
     Route: 048
  2. SEROQUEL [Suspect]
     Route: 048
  3. SEROQUEL [Suspect]
     Route: 048
  4. SEROQUEL [Suspect]
     Route: 048
  5. SEROQUEL [Suspect]
     Indication: SLEEP DISORDER
     Route: 048
  6. SEROQUEL [Suspect]
     Indication: ANXIETY
     Route: 048
  7. SEROQUEL [Suspect]
     Route: 048
  8. LATISSE [Concomitant]
  9. SEROQUEL [Suspect]
     Route: 048

REACTIONS (7)
  - MADAROSIS [None]
  - POISONING [None]
  - FEELING ABNORMAL [None]
  - THERAPEUTIC RESPONSE UNEXPECTED [None]
  - DISTURBANCE IN ATTENTION [None]
  - INTENTIONAL DRUG MISUSE [None]
  - ADVERSE EVENT [None]
